FAERS Safety Report 7012627-1 (Version None)
Quarter: 2010Q3

REPORT INFORMATION
  Report Type: 
  Country: None (occurrence: None)
  Receive Date: 20100924
  Receipt Date: 20100917
  Transmission Date: 20110219
  Serious: Yes (Hospitalization, Other)
  Sender: FDA-Public Use
  Company Number: CHPA2010US13497

PATIENT
  Age: 86 Year
  Sex: Female
  Weight: 56.236 kg

DRUGS (3)
  1. MAALOX ADV MAXIMUM STRENGTH ANTACID/ANTIGAS (NCH) [Suspect]
     Indication: IRRITABLE BOWEL SYNDROME
     Dosage: UNK, QD
     Route: 048
     Dates: end: 20100815
  2. MAALOX ADV MAXIMUM STRENGTH ANTACID/ANTIGAS (NCH) [Suspect]
     Indication: CONSTIPATION
  3. MAALOX ADV MAXIMUM STRENGTH ANTACID/ANTIGAS (NCH) [Suspect]
     Indication: GASTRIC ULCER

REACTIONS (8)
  - BLOOD PRESSURE INCREASED [None]
  - CORONARY ARTERY OCCLUSION [None]
  - FAECES DISCOLOURED [None]
  - INTENTIONAL DRUG MISUSE [None]
  - KNEE ARTHROPLASTY [None]
  - LOW DENSITY LIPOPROTEIN INCREASED [None]
  - OFF LABEL USE [None]
  - STENT PLACEMENT [None]
